FAERS Safety Report 6912505-X (Version None)
Quarter: 2010Q3

REPORT INFORMATION
  Report Type: 
  Country: None (occurrence: None)
  Receive Date: 20100806
  Receipt Date: 20080627
  Transmission Date: 20110219
  Serious: Yes (Hospitalization, Other)
  Sender: FDA-Public Use
  Company Number: US-PFIZER INC-2008042275

PATIENT
  Sex: Male
  Weight: 105.2 kg

DRUGS (6)
  1. DETROL LA [Suspect]
     Indication: URINARY INCONTINENCE
     Route: 048
     Dates: start: 20080510, end: 20080512
  2. DETROL LA [Suspect]
     Indication: DYSURIA
  3. LISINOPRIL AND HYDROCHLOROTHIAZIDE [Concomitant]
     Indication: HYPERTENSION
  4. LEVOTHYROXINE [Concomitant]
     Indication: THYROID DISORDER
  5. ANALGESICS [Concomitant]
  6. MUSCLE RELAXANTS [Concomitant]

REACTIONS (11)
  - ARTERIAL STENOSIS [None]
  - BACK PAIN [None]
  - CEREBROVASCULAR ACCIDENT [None]
  - CONFUSIONAL STATE [None]
  - CONVULSION [None]
  - DIZZINESS [None]
  - DYSARTHRIA [None]
  - DYSPHAGIA [None]
  - FEELING ABNORMAL [None]
  - LIMB DISCOMFORT [None]
  - VITAMIN B12 ABNORMAL [None]
